FAERS Safety Report 10367337 (Version 1)
Quarter: 2014Q3

REPORT INFORMATION
  Report Type: Spontaneous
  Country: DE (occurrence: DE)
  Receive Date: 20140807
  Receipt Date: 20140807
  Transmission Date: 20150326
  Serious: Yes (Hospitalization)
  Sender: FDA-Public Use
  Company Number: DE-SUN PHARMACEUTICAL INDUSTRIES LTD-2014SUN01760

PATIENT

DRUGS (1)
  1. OXALIPLATIN SUN 5 MG/ML POW FOR SOL FOR INFUSION [Suspect]
     Active Substance: OXALIPLATIN
     Indication: COLON CANCER
     Dosage: 260 MG, UNK
     Route: 042
     Dates: start: 20140714

REACTIONS (4)
  - Pharyngeal oedema [Recovered/Resolved]
  - Hypersensitivity [Recovered/Resolved]
  - Dyspnoea [Recovered/Resolved]
  - Dysphagia [Recovered/Resolved]

NARRATIVE: CASE EVENT DATE: 20140714
